FAERS Safety Report 18716749 (Version 2)
Quarter: 2021Q1

REPORT INFORMATION
  Report Type: Spontaneous
  Country: US (occurrence: US)
  Receive Date: 20210108
  Receipt Date: 20210121
  Transmission Date: 20210419
  Serious: No
  Sender: FDA-Public Use
  Company Number: US-SUNOVION-2020SUN003921

PATIENT
  Age: 42 Year
  Sex: Male
  Weight: 83.9 kg

DRUGS (2)
  1. LATUDA [Suspect]
     Active Substance: LURASIDONE HYDROCHLORIDE
     Indication: BIPOLAR DISORDER
     Dosage: 20 MG, QD
     Route: 048
  2. LATUDA [Suspect]
     Active Substance: LURASIDONE HYDROCHLORIDE
     Dosage: 20 MG, QD
     Route: 048
     Dates: start: 20201228

REACTIONS (15)
  - Condition aggravated [Unknown]
  - Road traffic accident [Unknown]
  - Therapy cessation [Unknown]
  - Abdominal distension [Unknown]
  - Mania [Not Recovered/Not Resolved]
  - Pallor [Unknown]
  - Insomnia [Not Recovered/Not Resolved]
  - Thinking abnormal [Unknown]
  - Abnormal behaviour [Unknown]
  - Hernia [Unknown]
  - Feeling abnormal [Unknown]
  - Anger [Not Recovered/Not Resolved]
  - Hypersexuality [Not Recovered/Not Resolved]
  - Weight increased [Unknown]
  - Swelling [Unknown]

NARRATIVE: CASE EVENT DATE: 202008
